FAERS Safety Report 10150223 (Version 1)
Quarter: 2014Q2

REPORT INFORMATION
  Report Type: Spontaneous
  Country: US (occurrence: US)
  Receive Date: 20140502
  Receipt Date: 20140502
  Transmission Date: 20141212
  Serious: Yes (Hospitalization)
  Sender: FDA-Public Use
  Company Number: US-ALLERGAN-1408482US

PATIENT
  Age: 75 Year
  Sex: Female

DRUGS (1)
  1. RESTASIS [Suspect]
     Indication: DRY EYE
     Dosage: 2 GTT, BID
     Route: 047
     Dates: start: 201304, end: 201306

REACTIONS (6)
  - Temporal arteritis [Not Recovered/Not Resolved]
  - Tunnel vision [Not Recovered/Not Resolved]
  - Eye disorder [Unknown]
  - Eye pain [Unknown]
  - Eye pain [Unknown]
  - Ocular hyperaemia [Unknown]
